FAERS Safety Report 8661872 (Version 3)
Quarter: 2014Q1

REPORT INFORMATION
  Report Type: Report from Study
  Country: US (occurrence: US)
  Receive Date: 20120712
  Receipt Date: 20140131
  Transmission Date: 20141002
  Serious: Yes (Other)
  Sender: FDA-Public Use
  Company Number: PHEH2012US007967

PATIENT
  Age: 56 Year
  Sex: Female

DRUGS (24)
  1. GILENYA [Suspect]
     Indication: MULTIPLE SCLEROSIS
     Dosage: 0.5 MG, QD
     Route: 048
     Dates: start: 20120409, end: 20120411
  2. ABILIFY [Concomitant]
     Dosage: UNK UKN, UNK
  3. LEXAPRO [Concomitant]
     Indication: DEPRESSION
     Dosage: 30 MG, QD
     Route: 048
     Dates: start: 20111011
  4. LORAZEPAM [Concomitant]
     Indication: INSOMNIA
     Dosage: 1 MG, QHS
     Route: 048
  5. VERAPAMIL [Concomitant]
     Indication: HYPERTENSION
     Dosage: 240 MG, BID
     Route: 048
  6. LABETALOL [Concomitant]
     Indication: HYPERTENSION
     Dosage: 300 MG, BID
     Dates: end: 20120419
  7. ISOSORB MONO [Concomitant]
     Indication: ANGINA PECTORIS
     Dosage: 30 MG, QD
     Route: 048
  8. OXYCODONE [Concomitant]
     Indication: PAIN
     Dosage: 5 MG, PRN
     Route: 048
  9. PRAVASTATIN [Concomitant]
     Indication: HYPERCHOLESTEROLAEMIA
     Dosage: 40 MG, QD
     Route: 048
  10. DIAZEPAM [Concomitant]
     Dosage: 5 MG, QD
     Route: 048
  11. CYCLOBENZAPRINE [Concomitant]
     Indication: MUSCLE SPASMS
     Dosage: 10 MG, BID
     Route: 048
  12. NUVIGIL [Concomitant]
     Indication: SOMNOLENCE
     Dosage: 150 MG, QD
     Route: 048
     Dates: start: 20110316
  13. BUMETANIDE [Concomitant]
     Indication: OEDEMA
     Dosage: 1 MG, PRN
     Route: 048
     Dates: start: 201106
  14. KETOCONAZOLE [Concomitant]
     Indication: SEBORRHOEIC DERMATITIS
     Dosage: 2 %, PRN
     Route: 061
     Dates: start: 20110311
  15. BETAMETHASONE DIPROPIONATE [Concomitant]
     Indication: SEBORRHOEIC DERMATITIS
     Dosage: 0.05 %, UNK
     Dates: start: 20110118
  16. MENTAX [Concomitant]
     Indication: TINEA INFECTION
     Dosage: 1 %, PRN
     Route: 061
     Dates: start: 20101209
  17. POTASSIUM [Concomitant]
     Dosage: 3 MG, QD
     Dates: start: 20100903
  18. VITAMIN D3 [Concomitant]
     Dosage: 4000 IU, QD
     Dates: start: 20100903
  19. PEPCID [Concomitant]
     Indication: GASTROOESOPHAGEAL REFLUX DISEASE
     Dosage: 20 MG, QD
     Dates: start: 20081209
  20. ASPIRIN [Concomitant]
     Dosage: 325 MG, QD
     Dates: start: 20081209
  21. MULTIVITAMINS [Concomitant]
     Dosage: 1 DF, QD
  22. COQ10 [Concomitant]
     Dosage: 100 MG, QD
  23. CALTRATE 600 + VITAMIN D [Concomitant]
     Dosage: UNK UKN, UNK
  24. DERMA SMOOTHE [Concomitant]
     Dosage: 0.01 %, PRN
     Route: 061

REACTIONS (10)
  - Bradycardia [Recovered/Resolved]
  - Feeling abnormal [Recovering/Resolving]
  - Palpitations [Recovering/Resolving]
  - Dizziness [Unknown]
  - Atrioventricular block first degree [Recovered/Resolved]
  - Electrocardiogram PR prolongation [Unknown]
  - Electrocardiogram QT prolonged [Not Recovered/Not Resolved]
  - Electrocardiogram T wave inversion [Not Recovered/Not Resolved]
  - Malaise [Unknown]
  - Diarrhoea [Not Recovered/Not Resolved]
